FAERS Safety Report 5721854-2 (Version None)
Quarter: 2008Q2

REPORT INFORMATION
  Report Type: 
  Country: None (occurrence: None)
  Receive Date: 20080429
  Receipt Date: 20080417
  Transmission Date: 20081010
  Serious: Yes (Death, Other)
  Sender: FDA-Public Use
  Company Number: NO-PFIZER INC-2008035213

PATIENT
  Age: 1 Month
  Sex: Male

DRUGS (10)
  1. FOSPHENYTOIN SODIUM [Suspect]
     Indication: EPILEPSY
     Route: 042
  2. AMPICILLIN [Concomitant]
     Route: 042
  3. TOBRAMYCIN [Concomitant]
     Route: 042
  4. FUROSEMIDE [Concomitant]
  5. TIOPENTAL [Concomitant]
  6. EPINEPHRINE [Concomitant]
     Route: 055
  7. PHENOBARBITAL TAB [Concomitant]
  8. ERYTHROMYCIN [Concomitant]
     Route: 048
  9. NOREPINEPHRINE [Concomitant]
  10. ATROPIN [Concomitant]
     Route: 042

REACTIONS (6)
  - BLOOD CREATININE INCREASED [None]
  - DRUG INEFFECTIVE [None]
  - HYPOTENSION [None]
  - OLIGURIA [None]
  - SHOCK [None]
  - SUPRAVENTRICULAR EXTRASYSTOLES [None]
